FAERS Safety Report 20331428 (Version 1)
Quarter: 2022Q1

REPORT INFORMATION
  Report Type: Spontaneous
  Country: ES (occurrence: ES)
  Receive Date: 20220113
  Receipt Date: 20220113
  Transmission Date: 20220424
  Serious: Yes (Other)
  Sender: FDA-Public Use
  Company Number: ES-NOVARTISPH-NVSC2022ES004687

PATIENT
  Sex: Female

DRUGS (5)
  1. MYFORTIC [Suspect]
     Active Substance: MYCOPHENOLATE SODIUM
     Indication: Product used for unknown indication
     Dosage: 2 DOSAGE FORM
     Route: 065
     Dates: start: 20211221
  2. MYFORTIC [Suspect]
     Active Substance: MYCOPHENOLATE SODIUM
     Dosage: 4 DOSAGE FORM
     Route: 065
  3. TIANEPTINE SODIUM [Concomitant]
     Active Substance: TIANEPTINE SODIUM
     Indication: Product used for unknown indication
     Dosage: UNK UNK, BID (2 IN THE MORNING AND 2 AT NIGHT)
     Route: 065
     Dates: start: 20211221
  4. LEVOTHYROXINE SODIUM [Concomitant]
     Active Substance: LEVOTHYROXINE SODIUM
     Indication: Product used for unknown indication
     Dosage: 2 UNK, BID (2 IN THE MORNING AND 2 AT NIGHT)
     Route: 065
     Dates: start: 20211221
  5. LORAZEPAM [Concomitant]
     Active Substance: LORAZEPAM
     Indication: Product used for unknown indication
     Dosage: 2 UNK, BID (2 IN THE MORNING AND 2 AT NIGHT)
     Route: 065
     Dates: start: 20211221

REACTIONS (2)
  - Suicidal ideation [Unknown]
  - Panic attack [Unknown]
